FAERS Safety Report 13653273 (Version 1)
Quarter: 2017Q2

REPORT INFORMATION
  Report Type: Spontaneous
  Country: US (occurrence: US)
  Receive Date: 20170614
  Receipt Date: 20170614
  Transmission Date: 20170830
  Serious: No
  Sender: FDA-Public Use
  Company Number: US-ROCHE-753352

PATIENT
  Age: 54 Year
  Sex: Female

DRUGS (8)
  1. FLUOROURACIL. [Concomitant]
     Active Substance: FLUOROURACIL
     Route: 065
  2. VECTIBIX [Concomitant]
     Active Substance: PANITUMUMAB
     Route: 065
     Dates: start: 201006, end: 201012
  3. AVASTIN [Suspect]
     Active Substance: BEVACIZUMAB
     Indication: COLORECTAL CANCER STAGE IV
     Route: 042
     Dates: start: 200902, end: 201002
  4. XELODA [Suspect]
     Active Substance: CAPECITABINE
     Dosage: DOSE:  3 TABS TWICE A DAY.
     Route: 048
  5. IRINOTECAN [Concomitant]
     Active Substance: IRINOTECAN
     Route: 065
     Dates: start: 201002, end: 201005
  6. FOLINIC ACID [Concomitant]
     Active Substance: LEUCOVORIN
     Route: 065
  7. XELODA [Suspect]
     Active Substance: CAPECITABINE
     Indication: COLORECTAL CANCER STAGE IV
     Dosage: DOSE:  3 TABS TWICE A DAY
     Route: 048
     Dates: start: 200912, end: 201002
  8. OXALIPLATIN. [Concomitant]
     Active Substance: OXALIPLATIN
     Route: 065

REACTIONS (2)
  - Unevaluable event [Unknown]
  - No adverse event [Unknown]
